FAERS Safety Report 5885639-9 (Version None)
Quarter: 2008Q3

REPORT INFORMATION
  Report Type: 
  Country: None (occurrence: None)
  Receive Date: 20080912
  Receipt Date: 20080901
  Transmission Date: 20090109
  Serious: Yes (Hospitalization)
  Sender: FDA-Public Use
  Company Number: GXKR2008IT08291

PATIENT
  Age: 38 Year
  Sex: Female

DRUGS (2)
  1. PREDNISONE TAB [Suspect]
     Indication: SYSTEMIC LUPUS ERYTHEMATOSUS
     Dosage: 25 MG,
  2. WARFARIN SODIUM [Concomitant]

REACTIONS (26)
  - ABSCESS DRAINAGE [None]
  - ACUTE RESPIRATORY DISTRESS SYNDROME [None]
  - ANTIPHOSPHOLIPID SYNDROME [None]
  - ANURIA [None]
  - ASPARTATE AMINOTRANSFERASE INCREASED [None]
  - BLISTER [None]
  - BLOOD CREATINE PHOSPHOKINASE INCREASED [None]
  - BLOOD CREATININE INCREASED [None]
  - BLOOD LACTATE DEHYDROGENASE INCREASED [None]
  - BLOOD PH DECREASED [None]
  - CARDIOLIPIN ANTIBODY POSITIVE [None]
  - DIALYSIS [None]
  - FIBRIN D DIMER INCREASED [None]
  - HAEMOGLOBIN DECREASED [None]
  - HYPOTENSION [None]
  - LUNG INFILTRATION [None]
  - MULTI-ORGAN FAILURE [None]
  - NECROSIS [None]
  - PLASMAPHERESIS [None]
  - PLATELET COUNT DECREASED [None]
  - RENAL FAILURE ACUTE [None]
  - SEPSIS [None]
  - SKIN NECROSIS [None]
  - SUBCUTANEOUS ABSCESS [None]
  - WHITE BLOOD CELL COUNT INCREASED [None]
  - WITHDRAWAL SYNDROME [None]
